FAERS Safety Report 4789167-3 (Version None)
Quarter: 2005Q4

REPORT INFORMATION
  Report Type: 
  Country: None (occurrence: None)
  Receive Date: 20051003
  Receipt Date: 20050901
  Transmission Date: 20060501
  Serious: No
  Sender: FDA-Public Use
  Company Number: SU-2005-003983

PATIENT
  Age: 87 Year
  Sex: Male
  Weight: 72.5755 kg

DRUGS (2)
  1. BENICAR HCT [Suspect]
     Indication: HYPERTENSION
     Dosage: 40.125MG QD PO
     Route: 048
     Dates: start: 20050101, end: 20050801
  2. BENICAR [Concomitant]

REACTIONS (5)
  - HYPERSENSITIVITY [None]
  - PRURITUS [None]
  - RASH GENERALISED [None]
  - SCRATCH [None]
  - SKIN HAEMORRHAGE [None]
